FAERS Safety Report 9307754 (Version 1)
Quarter: 2013Q2

REPORT INFORMATION
  Report Type: Spontaneous
  Country: DE (occurrence: DE)
  Receive Date: 20130524
  Receipt Date: 20130524
  Transmission Date: 20140414
  Serious: Yes (Hospitalization)
  Sender: FDA-Public Use
  Company Number: DE-JNJFOC-20130515686

PATIENT
  Age: 49 Year
  Sex: Female
  Weight: 99.8 kg

DRUGS (10)
  1. REMICADE [Suspect]
     Indication: CROHN^S DISEASE
     Route: 042
     Dates: start: 20120911
  2. REMICADE [Suspect]
     Indication: CROHN^S DISEASE
     Route: 042
     Dates: start: 20120717
  3. REMICADE [Suspect]
     Indication: CROHN^S DISEASE
     Route: 042
     Dates: start: 20120522
  4. REMICADE [Suspect]
     Indication: CROHN^S DISEASE
     Route: 042
     Dates: start: 20120417
  5. REMICADE [Suspect]
     Indication: CROHN^S DISEASE
     Route: 042
     Dates: start: 20120327
  6. REMICADE [Suspect]
     Indication: CROHN^S DISEASE
     Route: 042
     Dates: start: 20120306
  7. CLAVERSAL [Concomitant]
     Indication: CROHN^S DISEASE
     Route: 065
  8. PREDNISONE [Concomitant]
     Indication: CROHN^S DISEASE
     Route: 065
  9. SALOFALK [Concomitant]
     Indication: CROHN^S DISEASE
     Route: 065
  10. RAMIPRIL [Concomitant]
     Indication: HYPERTENSION
     Route: 065

REACTIONS (1)
  - Amaurosis fugax [Recovered/Resolved]
